FAERS Safety Report 16730573 (Version 1)
Quarter: 2019Q3

REPORT INFORMATION
  Report Type: Spontaneous
  Country: US (occurrence: US)
  Receive Date: 20190705
  Receipt Date: 20190705
  Transmission Date: 20191005
  Serious: Yes (Hospitalization)
  Sender: FDA-Public Use
  Company Number: None

PATIENT
  Age: 60 Year
  Sex: Female

DRUGS (4)
  1. ACTEMRA [Suspect]
     Active Substance: TOCILIZUMAB
     Indication: PRODUCT USED FOR UNKNOWN INDICATION
     Dosage: 1 SYR Q WK INJ SC??          START DATE OF THERAPY: 01/JAN-2020
     Route: 058
  2. PRESNISONE [Concomitant]
  3. CELECOXIB. [Concomitant]
     Active Substance: CELECOXIB
  4. GABAPENTIN. [Concomitant]
     Active Substance: GABAPENTIN

REACTIONS (1)
  - Dry mouth [None]

NARRATIVE: CASE EVENT DATE: 201906
